FAERS Safety Report 5969573-1 (Version None)
Quarter: 2008Q4

REPORT INFORMATION
  Report Type: 
  Country: None (occurrence: None)
  Receive Date: 20081126
  Receipt Date: 20080918
  Transmission Date: 20090506
  Serious: No
  Sender: FDA-Public Use
  Company Number: US-ABBOTT-08P-163-0477240-00

PATIENT
  Sex: Male

DRUGS (2)
  1. SIMCOR [Suspect]
     Indication: BLOOD CHOLESTEROL INCREASED
     Dosage: 500MG/20MG AT BEDTIME
     Route: 048
     Dates: start: 20080801
  2. SIMCOR [Suspect]
     Dosage: DOSAGE INCREASED
     Route: 048

REACTIONS (2)
  - HOT FLUSH [None]
  - PARAESTHESIA [None]
